FAERS Safety Report 5806369-5 (Version None)
Quarter: 2008Q3

REPORT INFORMATION
  Report Type: 
  Country: None (occurrence: None)
  Receive Date: 20080710
  Receipt Date: 20080630
  Transmission Date: 20090109
  Serious: Yes (Hospitalization)
  Sender: FDA-Public Use
  Company Number: CA-ELI_LILLY_AND_COMPANY-CA200807000675

PATIENT
  Age: 81 Year
  Sex: Female

DRUGS (11)
  1. FORTEO [Suspect]
     Indication: OSTEOPOROSIS
     Dosage: 20 UG, DAILY (1/D)
     Route: 058
     Dates: start: 20080204
  2. CALCIUM CARBONATE [Concomitant]
  3. DIGOXIN [Concomitant]
  4. LASIX [Concomitant]
  5. METHOTREXATE [Concomitant]
  6. PANTOPRAZOLE SODIUM [Concomitant]
  7. POTASSIUM CHLORIDE [Concomitant]
  8. ACTONEL [Concomitant]
  9. SPIRONOLACTONE [Concomitant]
  10. WARFARIN SODIUM [Concomitant]
  11. FENTANYL [Concomitant]

REACTIONS (5)
  - ASTHENIA [None]
  - DYSPNOEA [None]
  - DYSURIA [None]
  - RENAL DISORDER [None]
  - WEIGHT DECREASED [None]
